FAERS Safety Report 9181050 (Version 2)
Quarter: 2013Q2

REPORT INFORMATION
  Report Type: Spontaneous
  Country: US (occurrence: None)
  Receive Date: 20130320
  Receipt Date: 20130417
  Transmission Date: 20140414
  Serious: Yes (Hospitalization)
  Sender: FDA-Public Use
  Company Number: JPI-P-030426

PATIENT
  Age: 39 Year
  Sex: Female
  Weight: 61.24 kg

DRUGS (7)
  1. XYREM [Suspect]
     Indication: SOMNOLENCE
     Route: 048
     Dates: start: 20130228
  2. XYREM [Suspect]
     Indication: NARCOLEPSY
     Route: 048
     Dates: start: 20130228
  3. XYREM [Suspect]
     Indication: CATAPLEXY
     Route: 048
     Dates: start: 20130228
  4. FLUTICASONE PROPIONATE [Concomitant]
  5. ALBUTEROL SULFATE [Concomitant]
  6. GABAPENTIN [Concomitant]
  7. TRAMADOL [Concomitant]

REACTIONS (4)
  - Convulsion [None]
  - Dyspnoea [None]
  - Electrolyte imbalance [None]
  - Unresponsive to stimuli [None]
